FAERS Safety Report 8016968-0 (Version None)
Quarter: 2012Q1

REPORT INFORMATION
  Report Type: 
  Country: None (occurrence: None)
  Receive Date: 20120102
  Receipt Date: 20111227
  Transmission Date: 20120608
  Serious: Yes (Life-Threatening, Hospitalization)
  Sender: FDA-Public Use
  Company Number: PHHY2011FR112908

PATIENT
  Sex: Male

DRUGS (13)
  1. MEDIATENSYL [Suspect]
     Route: 048
     Dates: end: 20111122
  2. ZOLPIDEM [Concomitant]
  3. CARVEDILOL [Concomitant]
  4. FLU-IMUNE [Suspect]
     Route: 030
     Dates: start: 20111104
  5. GLUCOPHAGE [Suspect]
     Dosage: 500 MG, BID
     Route: 048
     Dates: end: 20111122
  6. THIAMINE HCL [Suspect]
     Dates: start: 19980101, end: 20111122
  7. AVODART [Suspect]
     Route: 048
     Dates: end: 20111122
  8. AMLODIPINE BESYLATE [Concomitant]
  9. NEXEN [Suspect]
     Route: 048
     Dates: end: 20111122
  10. VALSARTAN  AND HYDROCHLOROTHIAZIDE [Suspect]
     Dates: end: 20111122
  11. ACETAMINOPHEN [Concomitant]
  12. BEFIZAL [Suspect]
     Route: 048
     Dates: end: 20111122
  13. TRAMADOL HCL [Suspect]
     Route: 048
     Dates: end: 20111122

REACTIONS (2)
  - ANAEMIA MACROCYTIC [None]
  - ANAEMIA HAEMOLYTIC AUTOIMMUNE [None]
